FAERS Safety Report 5113201-4 (Version None)
Quarter: 2006Q3

REPORT INFORMATION
  Report Type: 
  Country: None (occurrence: None)
  Receive Date: 20060920
  Receipt Date: 20060901
  Transmission Date: 20061208
  Serious: Yes (Hospitalization)
  Sender: FDA-Public Use
  Company Number: US200606000305

PATIENT
  Age: 38 Year
  Sex: Female
  Weight: 60.8 kg

DRUGS (2)
  1. ZYPREXA [Suspect]
     Dosage: 2.5 MG,; 7.5 MG
     Dates: end: 20051214
  2. ZYPREXA [Suspect]
     Dosage: 2.5 MG,; 7.5 MG
     Dates: start: 20020930

REACTIONS (9)
  - BLOOD CHOLESTEROL INCREASED [None]
  - BLOOD TRIGLYCERIDES INCREASED [None]
  - CARDIAC DISORDER [None]
  - DIABETES MELLITUS [None]
  - HYPERTENSION [None]
  - HYPOGLYCAEMIA [None]
  - METABOLIC DISORDER [None]
  - OBESITY [None]
  - VISION BLURRED [None]
